FAERS Safety Report 6309087-2 (Version None)
Quarter: 2009Q3

REPORT INFORMATION
  Report Type: 
  Country: None (occurrence: None)
  Receive Date: 20090814
  Receipt Date: 20090810
  Transmission Date: 20100115
  Serious: Yes (Other)
  Sender: FDA-Public Use
  Company Number: US-TEVA-205435USA

PATIENT
  Age: 68 Year
  Sex: Female

DRUGS (1)
  1. LOVASTATIN 10 MG, 20MG + 40 MG TABLETS [Suspect]
     Indication: HYPERLIPIDAEMIA
     Route: 048

REACTIONS (1)
  - AMYOTROPHIC LATERAL SCLEROSIS [None]
